FAERS Safety Report 6643281-6 (Version None)
Quarter: 2010Q1

REPORT INFORMATION
  Report Type: 
  Country: None (occurrence: None)
  Receive Date: 20100316
  Receipt Date: 20100309
  Transmission Date: 20100710
  Serious: Yes (Life-Threatening, Hospitalization)
  Sender: FDA-Public Use
  Company Number: LTI2010A00041

PATIENT
  Age: 80 Year
  Sex: Male

DRUGS (10)
  1. COMPETACT (PIOGLITAZONE HYDROCHLORIDE, METFORMIN HYDROCHLORIDE) [Suspect]
     Indication: TYPE 2 DIABETES MELLITUS
     Dosage: 1 DF (1 DF, 1 IN 1 D)
     Route: 048
     Dates: start: 20070511, end: 20100117
  2. INEGY (SIMVASTATIN, EZETIMIBE) [Concomitant]
  3. PREVISCAN (FLUINDIONE) [Concomitant]
  4. ALLOPURINOL [Concomitant]
  5. BISOPROLOL FUMARATE [Concomitant]
  6. HYTACAND (HYDROCHLOROTHIAZIDE, CANDESARTAN CILEXETIL) [Concomitant]
  7. STRUCTUM (CHONDROITIN SULFATE SODIUM) [Concomitant]
  8. ACETAMINOPHEN [Concomitant]
  9. ZYMA (ENZYMES NOS) [Concomitant]
  10. ADVIL LIQUI-GELS [Concomitant]

REACTIONS (7)
  - BUNDLE BRANCH BLOCK LEFT [None]
  - FALL [None]
  - HEAD INJURY [None]
  - MENINGORRHAGIA [None]
  - MYOCARDIAL INFARCTION [None]
  - SUBDURAL HAEMATOMA [None]
  - SYNCOPE [None]
